FAERS Safety Report 6378567-6 (Version None)
Quarter: 2009Q3

REPORT INFORMATION
  Report Type: 
  Country: None (occurrence: None)
  Receive Date: 20090928
  Receipt Date: 20090914
  Transmission Date: 20100115
  Serious: Yes (Other)
  Sender: FDA-Public Use
  Company Number: IT-CELGENEUS-083-21880-09090981

PATIENT
  Sex: Female

DRUGS (1)
  1. REVLIMID [Suspect]
     Route: 048
     Dates: start: 20081203, end: 20090117

REACTIONS (1)
  - HEPATOTOXICITY [None]
